FAERS Safety Report 8113980-8 (Version None)
Quarter: 2012Q1

REPORT INFORMATION
  Report Type: 
  Country: None (occurrence: None)
  Receive Date: 20120203
  Receipt Date: 20120125
  Transmission Date: 20120608
  Serious: Yes (Hospitalization)
  Sender: FDA-Public Use
  Company Number: FR-ALLERGAN-1201161US

PATIENT
  Age: 85 Year
  Sex: Female

DRUGS (2)
  1. COMBIGAN [Suspect]
     Indication: GLAUCOMA
     Dosage: UNK
     Route: 047
     Dates: start: 20120110, end: 20120112
  2. TRAVATAN [Suspect]
     Indication: GLAUCOMA
     Dosage: UNK
     Route: 047
     Dates: start: 20120110, end: 20120112

REACTIONS (2)
  - SYNCOPE [None]
  - ATRIOVENTRICULAR BLOCK COMPLETE [None]
